FAERS Safety Report 7524717-5 (Version None)
Quarter: 2011Q2

REPORT INFORMATION
  Report Type: 
  Country: None (occurrence: None)
  Receive Date: 20110606
  Receipt Date: 20110601
  Transmission Date: 20111010
  Serious: Yes (Other)
  Sender: FDA-Public Use
  Company Number: JP-PFIZER INC-2011120033

PATIENT
  Sex: Male

DRUGS (4)
  1. EPADEL [Concomitant]
  2. VIAGRA [Suspect]
     Indication: ERECTILE DYSFUNCTION
     Dosage: UNK
     Dates: start: 20040101
  3. PRAVASTATIN SODIUM [Concomitant]
  4. LOXONIN [Concomitant]
     Indication: BACK PAIN
     Dosage: 1 OR 2 TABLETS/DAY

REACTIONS (2)
  - ALANINE AMINOTRANSFERASE INCREASED [None]
  - ASPARTATE AMINOTRANSFERASE INCREASED [None]
